FAERS Safety Report 4661130-2 (Version None)
Quarter: 2005Q2

REPORT INFORMATION
  Report Type: 
  Country: None (occurrence: None)
  Receive Date: 20050428
  Receipt Date: 20041221
  Transmission Date: 20051028
  Serious: Yes (Other)
  Sender: FDA-Public Use
  Company Number: 390241

PATIENT
  Age: 70 Year
  Sex: Male

DRUGS (5)
  1. NAPROSYN [Suspect]
     Indication: ARTHRITIS
     Dosage: ORAL
     Route: 048
     Dates: start: 20040915, end: 20041115
  2. ACETAMINOPHEN [Suspect]
     Indication: ARTHRITIS
     Dosage: 1 PER ONE DOSE ORAL
     Route: 048
     Dates: start: 20041112, end: 20041112
  3. SYNTHROID [Concomitant]
  4. HYDROCHLOROTHIAZIDE [Concomitant]
  5. VITAMIN NOS (VITAMIN NOS) [Concomitant]

REACTIONS (1)
  - STEVENS-JOHNSON SYNDROME [None]
